FAERS Safety Report 4737214-7 (Version None)
Quarter: 2005Q3

REPORT INFORMATION
  Report Type: 
  Country: None (occurrence: None)
  Receive Date: 20050808
  Receipt Date: 20050729
  Transmission Date: 20060218
  Serious: Yes (Hospitalization)
  Sender: FDA-Public Use
  Company Number: PHBS2005JP11161

PATIENT
  Age: 72 Year
  Sex: Male

DRUGS (6)
  1. DIOVAN [Suspect]
     Indication: HYPERTENSION
     Dosage: 80 MG/DAY
     Route: 048
     Dates: start: 20050701, end: 20050707
  2. SYMMETREL [Suspect]
     Dosage: 150 MG/DAY
     Route: 048
     Dates: start: 20050526, end: 20050704
  3. GASTER [Suspect]
     Dosage: 20 MG/DAY
     Route: 048
     Dates: start: 20050701, end: 20050704
  4. CONTOMIN [Suspect]
     Dosage: 25 MG/DAY
     Route: 048
     Dates: start: 20050701, end: 20050707
  5. CALBLOCK [Suspect]
     Dosage: 16 MG/DAY
     Route: 048
     Dates: start: 20050701, end: 20050707
  6. MAGNESIUM OXIDE [Suspect]
     Dosage: 2 G/DAY
     Route: 048
     Dates: start: 20050701, end: 20050707

REACTIONS (7)
  - ALANINE AMINOTRANSFERASE INCREASED [None]
  - ASPARTATE AMINOTRANSFERASE INCREASED [None]
  - BLOOD ALKALINE PHOSPHATASE INCREASED [None]
  - BLOOD BILIRUBIN ABNORMAL [None]
  - CONDITION AGGRAVATED [None]
  - GAMMA-GLUTAMYLTRANSFERASE INCREASED [None]
  - JAUNDICE [None]
